FAERS Safety Report 4495603-2 (Version None)
Quarter: 2004Q4

REPORT INFORMATION
  Report Type: 
  Country: None (occurrence: None)
  Receive Date: 20041108
  Receipt Date: 20041027
  Transmission Date: 20050328
  Serious: Yes (Hospitalization)
  Sender: FDA-Public Use
  Company Number: JP-BRISTOL-MYERS SQUIBB COMPANY-12749289

PATIENT
  Age: 31 Year
  Sex: Female

DRUGS (4)
  1. ZERIT [Suspect]
     Indication: HIV INFECTION
     Dosage: DAILY DOSE INCREASED TO 60 MG ON 05-DEC-2003
     Route: 048
     Dates: start: 20030602
  2. EPIVIR [Suspect]
     Indication: HIV INFECTION
     Dosage: DAILY DOSE INCREASED TO 300 MG ON 05-DEC-2003
     Route: 048
     Dates: start: 20030602
  3. ZIAGEN [Suspect]
     Indication: HIV INFECTION
     Route: 048
     Dates: start: 20030602, end: 20040225
  4. ZYLORIC [Concomitant]
     Route: 048
     Dates: start: 20030623

REACTIONS (1)
  - ATYPICAL MYCOBACTERIAL INFECTION [None]
